FAERS Safety Report 7491210-8 (Version None)
Quarter: 2011Q2

REPORT INFORMATION
  Report Type: 
  Country: None (occurrence: None)
  Receive Date: 20110518
  Receipt Date: 20110518
  Transmission Date: 20111010
  Serious: Yes (Disabling)
  Sender: FDA-Public Use
  Company Number: None

PATIENT
  Age: 75 Year
  Sex: Female
  Weight: 79.3795 kg

DRUGS (1)
  1. CRESTOR [Suspect]
     Indication: LOW DENSITY LIPOPROTEIN INCREASED
     Dates: start: 20101227, end: 20110215

REACTIONS (6)
  - ARTHRALGIA [None]
  - BACK PAIN [None]
  - ODYNOPHAGIA [None]
  - MYALGIA [None]
  - ABDOMINAL PAIN [None]
  - CHEST PAIN [None]
